FAERS Safety Report 5254046-4 (Version None)
Quarter: 2007Q1

REPORT INFORMATION
  Report Type: 
  Country: None (occurrence: None)
  Receive Date: 20070302
  Receipt Date: 20070222
  Transmission Date: 20070707
  Serious: Yes (Death, Hospitalization)
  Sender: FDA-Public Use
  Company Number: GB-BAXTER-2007BH000796

PATIENT
  Age: 72 Year
  Sex: Male

DRUGS (1)
  1. EXTRANEAL [Suspect]
     Indication: PERITONEAL DIALYSIS
     Route: 033
     Dates: start: 20061201

REACTIONS (6)
  - ABDOMINAL DISTENSION [None]
  - DEATH [None]
  - INTESTINAL PERFORATION [None]
  - PERITONITIS BACTERIAL [None]
  - SEPSIS [None]
  - VOMITING [None]
